FAERS Safety Report 9927691 (Version 3)
Quarter: 2014Q2

REPORT INFORMATION
  Report Type: Spontaneous
  Country: US (occurrence: US)
  Receive Date: 20140227
  Receipt Date: 20140402
  Transmission Date: 20141212
  Serious: Yes (Hospitalization, Other)
  Sender: FDA-Public Use
  Company Number: US-AMGEN-USASP2014012258

PATIENT
  Age: 82 Year
  Sex: Female

DRUGS (5)
  1. PROLIA [Suspect]
     Indication: OSTEOPOROSIS POSTMENOPAUSAL
     Dosage: 60 MG, Q6MO
     Route: 058
     Dates: start: 20130411, end: 20131110
  2. PROLIA [Suspect]
     Route: 058
  3. CALCIUM [Concomitant]
  4. VITAMIN D                          /00107901/ [Concomitant]
  5. LISINOPRIL [Concomitant]

REACTIONS (3)
  - Bone disorder [Unknown]
  - Fall [Unknown]
  - Atypical femur fracture [Not Recovered/Not Resolved]
